FAERS Safety Report 11151808 (Version 2)
Quarter: 2015Q2

REPORT INFORMATION
  Report Type: Spontaneous
  Country: US (occurrence: US)
  Receive Date: 20150601
  Receipt Date: 20150617
  Transmission Date: 20150821
  Serious: No
  Sender: FDA-Public Use
  Company Number: US-PFIZER INC-2015173406

PATIENT
  Age: 63 Year
  Sex: Female
  Weight: 68 kg

DRUGS (6)
  1. CYMBALTA [Concomitant]
     Active Substance: DULOXETINE HYDROCHLORIDE
     Indication: PAIN
     Dosage: 60 MG, 1X/DAY
  2. AMBIEN [Concomitant]
     Active Substance: ZOLPIDEM TARTRATE
     Indication: SLEEP DISORDER
     Dosage: 10 MG, UNK
  3. CYMBALTA [Concomitant]
     Active Substance: DULOXETINE HYDROCHLORIDE
     Indication: ANTIDEPRESSANT THERAPY
  4. LYRICA [Suspect]
     Active Substance: PREGABALIN
     Indication: BONE DISORDER
     Dosage: 10 MG, 3X/DAY
  5. TRAMADOL [Concomitant]
     Active Substance: TRAMADOL
     Indication: PAIN
     Dosage: 100 MG, 3X/DAY
  6. LIDOCAINE. [Concomitant]
     Active Substance: LIDOCAINE
     Dosage: 5 PERCENT, 50MG/GM, 700MG

REACTIONS (1)
  - Drug ineffective [Not Recovered/Not Resolved]
